FAERS Safety Report 4643068-X (Version None)
Quarter: 2005Q2

REPORT INFORMATION
  Report Type: 
  Country: None (occurrence: None)
  Receive Date: 20050422
  Receipt Date: 20050408
  Transmission Date: 20051028
  Serious: Yes (Life-Threatening, Other)
  Sender: FDA-Public Use
  Company Number: 2005003387

PATIENT
  Age: 59 Year
  Sex: Male

DRUGS (1)
  1. NEURONTIN [Suspect]
     Indication: RESTLESS LEGS SYNDROME
     Dates: start: 19990312

REACTIONS (6)
  - CORNEAL ULCER [None]
  - DRUG INEFFECTIVE [None]
  - GUN SHOT WOUND [None]
  - SELF INJURIOUS BEHAVIOUR [None]
  - SPINAL FRACTURE [None]
  - SUICIDE ATTEMPT [None]
